FAERS Safety Report 9721015 (Version 4)
Quarter: 2014Q2

REPORT INFORMATION
  Report Type: Spontaneous
  Country: US (occurrence: US)
  Receive Date: 20131129
  Receipt Date: 20140411
  Transmission Date: 20141212
  Serious: No
  Sender: FDA-Public Use
  Company Number: US-PFIZER INC-2013282313

PATIENT
  Sex: Female

DRUGS (2)
  1. CALAN SR [Suspect]
     Dosage: 240 MG, UNK
  2. CALAN SR [Suspect]
     Dosage: 120 MG, UNK

REACTIONS (4)
  - Hypersensitivity [Unknown]
  - Malaise [Unknown]
  - Vomiting [Unknown]
  - Diarrhoea [Unknown]
